FAERS Safety Report 17610572 (Version 5)
Quarter: 2021Q3

REPORT INFORMATION
  Report Type: Spontaneous
  Country: US (occurrence: US)
  Receive Date: 20200401
  Receipt Date: 20210806
  Transmission Date: 20211014
  Serious: Yes (Hospitalization, Other)
  Sender: FDA-Public Use
  Company Number: US-PFIZER INC-2020134121

PATIENT
  Age: 70 Year
  Sex: Female
  Weight: 56.69 kg

DRUGS (2)
  1. ARTHROTEC [Suspect]
     Active Substance: DICLOFENAC SODIUM\MISOPROSTOL
     Indication: ARTHRITIS
     Dosage: UNK, 1X/DAY
     Dates: end: 201912
  2. ARTHROTEC [Suspect]
     Active Substance: DICLOFENAC SODIUM\MISOPROSTOL
     Dosage: 2 DF, 1X/DAY (TWO TABLETS IN THE MORNING)
     Dates: end: 201912

REACTIONS (1)
  - Nephrolithiasis [Unknown]
